FAERS Safety Report 12994764 (Version 3)
Quarter: 2017Q3

REPORT INFORMATION
  Report Type: Report from Study
  Country: None (occurrence: CA)
  Receive Date: 20161202
  Receipt Date: 20170803
  Transmission Date: 20171127
  Serious: Yes (Disabling, Other)
  Sender: FDA-Public Use
  Company Number: CA-ABBVIE-16K-028-1794337-00

PATIENT
  Sex: Male

DRUGS (4)
  1. HUMIRA [Suspect]
     Active Substance: ADALIMUMAB
     Route: 058
     Dates: start: 20161017, end: 201702
  2. HUMIRA [Suspect]
     Active Substance: ADALIMUMAB
     Route: 058
     Dates: start: 201702
  3. HUMIRA [Suspect]
     Active Substance: ADALIMUMAB
     Route: 058
     Dates: start: 20170217, end: 20170217
  4. HUMIRA [Suspect]
     Active Substance: ADALIMUMAB
     Indication: CROHN^S DISEASE
     Route: 058
     Dates: start: 20150508, end: 2016

REACTIONS (4)
  - General physical health deterioration [Recovering/Resolving]
  - Abnormal faeces [Not Recovered/Not Resolved]
  - Rectal abscess [Recovering/Resolving]
  - Rectal tenesmus [Not Recovered/Not Resolved]

NARRATIVE: CASE EVENT DATE: 2016
